FAERS Safety Report 7455043-0 (Version None)
Quarter: 2011Q2

REPORT INFORMATION
  Report Type: 
  Country: None (occurrence: None)
  Receive Date: 20110503
  Receipt Date: 20110421
  Transmission Date: 20111010
  Serious: Yes (Hospitalization)
  Sender: FDA-Public Use
  Company Number: US-AMGEN-USASP2011021172

PATIENT
  Age: 65 Year
  Sex: Female

DRUGS (1)
  1. ENBREL [Suspect]
     Indication: PSORIATIC ARTHROPATHY
     Dosage: 50 MG, QWK
     Dates: start: 20070815

REACTIONS (11)
  - SCAB [None]
  - WOUND [None]
  - IMPAIRED HEALING [None]
  - FOOT DEFORMITY [None]
  - BUNION [None]
  - LOCAL SWELLING [None]
  - PSORIATIC ARTHROPATHY [None]
  - PAIN IN EXTREMITY [None]
  - PRURITUS [None]
  - HAEMORRHAGE [None]
  - SKIN DISCOLOURATION [None]
